FAERS Safety Report 8190186-8 (Version None)
Quarter: 2012Q1

REPORT INFORMATION
  Report Type: 
  Country: None (occurrence: None)
  Receive Date: 20120307
  Receipt Date: 20120223
  Transmission Date: 20120608
  Serious: Yes (Life-Threatening)
  Sender: FDA-Public Use
  Company Number: FR-SANOFI-AVENTIS-2012SA012043

PATIENT
  Age: 60 Year
  Sex: Female

DRUGS (10)
  1. LERCANIDIPINE [Suspect]
     Route: 048
     Dates: end: 20120107
  2. LERCANIDIPINE [Suspect]
     Route: 065
     Dates: start: 20120115
  3. METFORMIN HYDROCHLORIDE [Suspect]
     Route: 048
     Dates: end: 20120107
  4. ENALAPRIL MALEATE AND HYDROCHLOROTHIAZIDE [Suspect]
     Route: 048
     Dates: end: 20120107
  5. POTASSIUM CHLORIDE [Suspect]
     Route: 048
     Dates: end: 20120107
  6. VALSARTAN [Suspect]
     Route: 048
     Dates: end: 20120107
  7. POTASSIUM CHLORIDE [Suspect]
     Route: 065
     Dates: start: 20120117
  8. LASIX [Suspect]
     Route: 048
     Dates: start: 20120102, end: 20120107
  9. VOLTAREN [Suspect]
     Route: 048
     Dates: end: 20120107
  10. JANUVIA [Suspect]
     Route: 048
     Dates: end: 20120107

REACTIONS (3)
  - RENAL FAILURE ACUTE [None]
  - CARDIO-RESPIRATORY ARREST [None]
  - HYPERKALAEMIA [None]
